FAERS Safety Report 17221529 (Version 1)
Quarter: 2020Q1

REPORT INFORMATION
  Report Type: Spontaneous
  Country: DE (occurrence: DE)
  Receive Date: 20200101
  Receipt Date: 20200101
  Transmission Date: 20200409
  Serious: Yes (Death, Other)
  Sender: FDA-Public Use
  Company Number: DE-ROCHE-2461598

PATIENT
  Age: 70 Year
  Sex: Male

DRUGS (7)
  1. DEXAMETHASONE. [Concomitant]
     Active Substance: DEXAMETHASONE
  2. IBRUTINIB [Suspect]
     Active Substance: IBRUTINIB
     Indication: B-CELL SMALL LYMPHOCYTIC LYMPHOMA
     Route: 065
  3. RITUXIMAB. [Suspect]
     Active Substance: RITUXIMAB
     Indication: B-CELL SMALL LYMPHOCYTIC LYMPHOMA
  4. IBRUTINIB [Suspect]
     Active Substance: IBRUTINIB
     Indication: CYTOPENIA
  5. RIBAVIRIN. [Concomitant]
     Active Substance: RIBAVIRIN
  6. RITUXIMAB. [Suspect]
     Active Substance: RITUXIMAB
     Indication: CYTOPENIA
     Dosage: SINGLE INFUSION
     Route: 041
  7. BORTEZOMIB. [Concomitant]
     Active Substance: BORTEZOMIB

REACTIONS (9)
  - Pancytopenia [Fatal]
  - Alanine aminotransferase increased [Unknown]
  - Transaminases increased [Unknown]
  - B-lymphocyte count decreased [Unknown]
  - Intentional product use issue [Unknown]
  - Pulmonary mycosis [Fatal]
  - Off label use [Unknown]
  - Blood bilirubin increased [Unknown]
  - Hepatitis E [Unknown]
